FAERS Safety Report 6517311-6 (Version None)
Quarter: 2009Q4

REPORT INFORMATION
  Report Type: 
  Country: None (occurrence: None)
  Receive Date: 20091218
  Receipt Date: 20091210
  Transmission Date: 20100525
  Serious: No
  Sender: FDA-Public Use
  Company Number: 2009US004170

PATIENT
  Sex: Female

DRUGS (7)
  1. VESICARE [Suspect]
     Indication: URGE INCONTINENCE
     Dosage: ORAL
     Route: 048
     Dates: start: 20091030, end: 20091108
  2. COZAAR [Concomitant]
  3. LORATADINE [Concomitant]
  4. METOPROLOL (METOPROLOL) [Concomitant]
  5. NEXIUM (ESOMEPRAZOLE SODIUM) [Concomitant]
  6. SINGULAIR [Concomitant]
  7. ZETIA [Concomitant]

REACTIONS (4)
  - CONFUSIONAL STATE [None]
  - CONSTIPATION [None]
  - HEADACHE [None]
  - TINNITUS [None]
